FAERS Safety Report 8454363-0 (Version None)
Quarter: 2012Q2

REPORT INFORMATION
  Report Type: 
  Country: None (occurrence: None)
  Receive Date: 20120621
  Receipt Date: 20120530
  Transmission Date: 20120825
  Serious: No
  Sender: FDA-Public Use
  Company Number: US-ALLERGAN-1207749US

PATIENT
  Age: 66 Year
  Sex: Female
  Weight: 46.259 kg

DRUGS (1)
  1. LUMIGAN [Suspect]
     Indication: GLAUCOMA
     Dosage: UNK
     Route: 047

REACTIONS (2)
  - ORAL PRURITUS [None]
  - TONGUE PRURITUS [None]
